FAERS Safety Report 24881278 (Version 2)
Quarter: 2025Q1

REPORT INFORMATION
  Report Type: Report from Study
  Country: CA (occurrence: CA)
  Receive Date: 20250124
  Receipt Date: 20250221
  Transmission Date: 20250408
  Serious: Yes (Other)
  Sender: BIOCON
  Company Number: CA-MYLANLABS-2023M1125965

PATIENT

DRUGS (1)
  1. HULIO [Suspect]
     Active Substance: ADALIMUMAB-FKJP
     Indication: Hidradenitis
     Route: 058
     Dates: start: 20231123

REACTIONS (6)
  - Seizure [Unknown]
  - Psoriasis [Unknown]
  - Injection site haemorrhage [Unknown]
  - Injection site pain [Unknown]
  - Product administered at inappropriate site [Unknown]
  - Lack of injection site rotation [Unknown]
